FAERS Safety Report 13009242 (Version 1)
Quarter: 2016Q4

REPORT INFORMATION
  Report Type: Spontaneous
  Country: US (occurrence: US)
  Receive Date: 20161208
  Receipt Date: 20161208
  Transmission Date: 20170207
  Serious: Yes (Other)
  Sender: FDA-Public Use
  Company Number: US-CELGENEUS-USA-2016121322

PATIENT
  Age: 78 Year
  Sex: Male

DRUGS (8)
  1. ZOMETA [Concomitant]
     Active Substance: ZOLEDRONIC ACID
     Indication: BONE LESION
     Route: 065
     Dates: start: 20130102
  2. LABETALOL [Concomitant]
     Active Substance: LABETALOL\LABETALOL HYDROCHLORIDE
     Indication: HYPERTENSION
     Dosage: 400MG
     Route: 048
  3. POMALYST [Suspect]
     Active Substance: POMALIDOMIDE
     Dosage: 3 MG
     Route: 048
     Dates: start: 20160129, end: 20161121
  4. ELIQUIS [Concomitant]
     Active Substance: APIXABAN
     Indication: PULMONARY EMBOLISM
     Dosage: 5MG
     Route: 048
     Dates: start: 20151126
  5. POMALYST [Suspect]
     Active Substance: POMALIDOMIDE
     Indication: PLASMA CELL MYELOMA
     Dosage: 2MG
     Route: 048
     Dates: start: 201511
  6. AMLODIPINE [Concomitant]
     Active Substance: AMLODIPINE BESYLATE
     Indication: HYPERTENSION
     Dosage: 5MG
     Route: 048
  7. TYLENOL WITH CODEINE [Concomitant]
     Active Substance: ACETAMINOPHEN\CODEINE PHOSPHATE
     Indication: PAIN
     Route: 048
     Dates: start: 20140924
  8. DEXAMETHASONE. [Concomitant]
     Active Substance: DEXAMETHASONE
     Indication: PLASMA CELL MYELOMA
     Dosage: 20MG
     Route: 048
     Dates: start: 20160316

REACTIONS (1)
  - Plasma cell myeloma [Not Recovered/Not Resolved]

NARRATIVE: CASE EVENT DATE: 20161031
